FAERS Safety Report 5208144-1 (Version None)
Quarter: 2007Q1

REPORT INFORMATION
  Report Type: 
  Country: None (occurrence: None)
  Receive Date: 20070115
  Receipt Date: 20070108
  Transmission Date: 20070707
  Serious: Yes (Hospitalization, Disabling)
  Sender: FDA-Public Use
  Company Number: US-ROCHE-456181

PATIENT
  Age: 18 Year
  Sex: Male
  Weight: 77.1 kg

DRUGS (2)
  1. ACCUTANE [Suspect]
     Indication: ACNE
     Route: 048
     Dates: start: 19890621, end: 19890819
  2. ACCUTANE [Suspect]
     Route: 048
     Dates: start: 19890905, end: 19900126

REACTIONS (34)
  - ABDOMINAL PAIN [None]
  - ANHEDONIA [None]
  - ANXIETY [None]
  - BACK PAIN [None]
  - CHEILITIS [None]
  - COLITIS [None]
  - COLITIS ULCERATIVE [None]
  - DEPERSONALISATION [None]
  - DEPRESSION [None]
  - DISTURBANCE IN ATTENTION [None]
  - DUODENITIS [None]
  - FEELING GUILTY [None]
  - FEELINGS OF WORTHLESSNESS [None]
  - FLIGHT OF IDEAS [None]
  - GASTRITIS [None]
  - GASTROINTESTINAL DISORDER [None]
  - GASTROOESOPHAGEAL REFLUX DISEASE [None]
  - HAEMORRHOIDS [None]
  - INFLAMMATORY BOWEL DISEASE [None]
  - INTESTINAL HAEMORRHAGE [None]
  - IRRITABLE BOWEL SYNDROME [None]
  - MENTAL STATUS CHANGES [None]
  - MUSCULOSKELETAL DISORDER [None]
  - NECK INJURY [None]
  - OESOPHAGITIS [None]
  - PANIC ATTACK [None]
  - PERFORMANCE FEAR [None]
  - PSYCHOMOTOR HYPERACTIVITY [None]
  - RECTAL HAEMORRHAGE [None]
  - RESTLESSNESS [None]
  - SELF ESTEEM DECREASED [None]
  - SLEEP DISORDER [None]
  - SOCIAL PHOBIA [None]
  - WEIGHT FLUCTUATION [None]
